FAERS Safety Report 12894218 (Version 1)
Quarter: 2016Q4

REPORT INFORMATION
  Report Type: Spontaneous
  Country: US (occurrence: US)
  Receive Date: 20161028
  Receipt Date: 20161028
  Transmission Date: 20170207
  Serious: No
  Sender: FDA-Public Use
  Company Number: US-DSJP-DSU-2016-127988

PATIENT
  Age: 68 Year
  Sex: Female

DRUGS (4)
  1. AZOR [Suspect]
     Active Substance: AMLODIPINE BESYLATE\OLMESARTAN MEDOXOMIL
     Dosage: 40/10 MG, QD
     Dates: start: 20160829
  2. CHOLESTEROL MEDICINE [Concomitant]
     Active Substance: UNSPECIFIED INGREDIENT
     Indication: BLOOD CHOLESTEROL INCREASED
     Dosage: UNK
  3. DIABETEC MEDICINE [Concomitant]
     Indication: DIABETES MELLITUS
     Dosage: UNK
  4. AZOR [Suspect]
     Active Substance: AMLODIPINE BESYLATE\OLMESARTAN MEDOXOMIL
     Indication: HYPERTENSION
     Dosage: 40/10 MG, UNK
     Dates: start: 2014, end: 201608

REACTIONS (1)
  - Blood pressure increased [Unknown]

NARRATIVE: CASE EVENT DATE: 20160827
